FAERS Safety Report 6198491-1 (Version None)
Quarter: 2009Q2

REPORT INFORMATION
  Report Type: 
  Country: None (occurrence: None)
  Receive Date: 20090521
  Receipt Date: 20090514
  Transmission Date: 20091009
  Serious: Yes (Other)
  Sender: FDA-Public Use
  Company Number: PHEH2008US02665

PATIENT
  Sex: Female

DRUGS (6)
  1. AREDIA [Suspect]
     Indication: BONE PAIN
  2. ZOMETA [Suspect]
  3. COUMADIN [Concomitant]
  4. DECADRON                                /CAN/ [Concomitant]
  5. CELEXA [Concomitant]
  6. DETROL [Concomitant]

REACTIONS (15)
  - ALVEOLOPLASTY [None]
  - ANXIETY [None]
  - BONE DISORDER [None]
  - DENTAL CARIES [None]
  - DENTAL FISTULA [None]
  - DENTURE WEARER [None]
  - DISABILITY [None]
  - INJURY [None]
  - MASTICATION DISORDER [None]
  - NIGHT SWEATS [None]
  - OSTEONECROSIS [None]
  - PAIN [None]
  - PAIN IN JAW [None]
  - TOOTH EXTRACTION [None]
  - WEIGHT DECREASED [None]
